FAERS Safety Report 6473726-6 (Version None)
Quarter: 2009Q4

REPORT INFORMATION
  Report Type: 
  Country: None (occurrence: None)
  Receive Date: 20091204
  Receipt Date: 20091126
  Transmission Date: 20100525
  Serious: Yes (Other)
  Sender: FDA-Public Use
  Company Number: IT-JNJFOC-20091107869

PATIENT
  Sex: Male

DRUGS (1)
  1. TAVANIC [Suspect]
     Indication: PROSTATITIS
     Route: 048
     Dates: start: 20091122, end: 20091122

REACTIONS (3)
  - ABDOMINAL PAIN UPPER [None]
  - APHONIA [None]
  - HYPERSENSITIVITY [None]
